FAERS Safety Report 11083919 (Version 1)
Quarter: 2015Q2

REPORT INFORMATION
  Report Type: Spontaneous
  Country: GB (occurrence: GB)
  Receive Date: 20150501
  Receipt Date: 20150501
  Transmission Date: 20150821
  Serious: Yes (Hospitalization)
  Sender: FDA-Public Use
  Company Number: GB-GE HEALTHCARE MEDICAL DIAGNOSTICS-OMPQ-PR-1504S-0496

PATIENT
  Age: 37 Year
  Sex: Female

DRUGS (2)
  1. OMNIPAQUE [Suspect]
     Active Substance: IOHEXOL
     Indication: NEUROENDOCRINE TUMOUR
     Route: 042
     Dates: start: 20150326, end: 20150326
  2. OMNIPAQUE [Suspect]
     Active Substance: IOHEXOL
     Indication: DIAGNOSTIC PROCEDURE

REACTIONS (5)
  - Dizziness [Recovered/Resolved]
  - Dysphagia [Recovered/Resolved]
  - Heart rate increased [Recovered/Resolved]
  - Chest discomfort [Recovered/Resolved]
  - Sneezing [Recovered/Resolved]

NARRATIVE: CASE EVENT DATE: 20150326
